FAERS Safety Report 22613124 (Version 14)
Quarter: 2024Q2

REPORT INFORMATION
  Report Type: Spontaneous
  Country: CA (occurrence: CA)
  Receive Date: 20230618
  Receipt Date: 20240415
  Transmission Date: 20240716
  Serious: Yes (Hospitalization, Other)
  Sender: FDA-Public Use
  Company Number: CA-CELLTRION INC.-2023CA007469

PATIENT

DRUGS (18)
  1. INFLECTRA [Suspect]
     Active Substance: INFLIXIMAB-DYYB
     Indication: Crohn^s disease
     Dosage: 5 MG/KG, INDUCTION AT WEEK 0, 2, 6 THEN MAINTENANCE Q 8 WEEKS
     Route: 042
     Dates: start: 20230303
  2. INFLECTRA [Suspect]
     Active Substance: INFLIXIMAB-DYYB
     Dosage: 535 MG (5 MG/KG), INDUCTION AT WEEK 0, 2, 6 THEN MAINTENANCE Q 8 WEEKS
     Route: 042
     Dates: start: 20230317
  3. INFLECTRA [Suspect]
     Active Substance: INFLIXIMAB-DYYB
     Dosage: 535 MG (5 MG/KG), INDUCTION AT WEEK 0, 2, 6 THEN MAINTENANCE Q 8 WEEKS
     Route: 042
     Dates: start: 20230413
  4. INFLECTRA [Suspect]
     Active Substance: INFLIXIMAB-DYYB
     Dosage: 525 MG (5 MG/KG), AFTER 8 WEEKS
     Route: 042
     Dates: start: 20230608
  5. INFLECTRA [Suspect]
     Active Substance: INFLIXIMAB-DYYB
     Dosage: 1050 MG (10 MG/KG), WEEK 0 REINDUCTION (AT WEEK 0, 2 AND 6, THEN Q 6 WEEKS)
     Route: 042
     Dates: start: 20230621
  6. INFLECTRA [Suspect]
     Active Substance: INFLIXIMAB-DYYB
     Dosage: 1050 MG (10 MG/KG), WEEK 0 REINDUCTION (AT WEEK 0, 2 AND 6, THEN Q 6 WEEKS)
     Route: 042
     Dates: start: 20230621
  7. INFLECTRA [Suspect]
     Active Substance: INFLIXIMAB-DYYB
     Dosage: 10 MG/KG, WEEK 2 REINDUCTION DOSE,(REINDUCTION AT WEEK 0, 2 AND 6, THEN EVERY 6 WEEKS)
     Route: 042
     Dates: start: 20230705
  8. INFLECTRA [Suspect]
     Active Substance: INFLIXIMAB-DYYB
     Dosage: 1070 MG, EVERY 4 WEEKS
     Route: 042
     Dates: start: 20230802
  9. INFLECTRA [Suspect]
     Active Substance: INFLIXIMAB-DYYB
     Dosage: 1050 MG, EVERY 6 WEEKS
     Route: 042
     Dates: start: 20230914
  10. INFLECTRA [Suspect]
     Active Substance: INFLIXIMAB-DYYB
     Dosage: 1070 MG (10 MG/KG), 7 WEEKS AND 6 DAYS AFTER (PRESCRIBED IS EVERY 6 WEEKS)
     Route: 042
     Dates: start: 20231108
  11. INFLECTRA [Suspect]
     Active Substance: INFLIXIMAB-DYYB
     Dosage: 1080 (10 MG/KG), AFTER 6 WEEKS (REINDUCTION AT WEEK 0, 2 AND 6, THEN Q 6 WEEKS)
     Route: 042
     Dates: start: 20231220
  12. INFLECTRA [Suspect]
     Active Substance: INFLIXIMAB-DYYB
     Dosage: 1050 (10 MG/KG), AFTER 6 WEEKS
     Route: 042
     Dates: start: 20240131
  13. INFLECTRA [Suspect]
     Active Substance: INFLIXIMAB-DYYB
     Dosage: 1090 MG (10 MG/KG), EVERY 4 WEEKS
     Route: 042
     Dates: start: 20240228
  14. INFLECTRA [Suspect]
     Active Substance: INFLIXIMAB-DYYB
     Dosage: 10 MG/KG, EVERY 4 WEEKS (1070 MG 3 WEEKS AND 6 DAYS)
     Route: 042
     Dates: start: 20240325, end: 2024
  15. PREDNISONE [Concomitant]
     Active Substance: PREDNISONE
     Dosage: 1 DF
  16. PREDNISONE [Concomitant]
     Active Substance: PREDNISONE
     Dosage: 1 DF
     Dates: start: 202302
  17. PREDNISONE [Concomitant]
     Active Substance: PREDNISONE
     Dosage: UNK, AS NEEDED
     Dates: start: 20240322
  18. CHOLECALCIFEROL [Concomitant]
     Active Substance: CHOLECALCIFEROL
     Dosage: 1 DF

REACTIONS (10)
  - Colitis [Not Recovered/Not Resolved]
  - Condition aggravated [Not Recovered/Not Resolved]
  - Streptococcal infection [Recovered/Resolved]
  - Drug ineffective [Unknown]
  - Therapeutic response shortened [Not Recovered/Not Resolved]
  - Drug specific antibody present [Unknown]
  - Drug level decreased [Unknown]
  - Arthralgia [Recovered/Resolved]
  - Malaise [Not Recovered/Not Resolved]
  - Off label use [Unknown]

NARRATIVE: CASE EVENT DATE: 20230101
